FAERS Safety Report 19061081 (Version 1)
Quarter: 2021Q1

REPORT INFORMATION
  Report Type: Spontaneous
  Country: US (occurrence: US)
  Receive Date: 20210326
  Receipt Date: 20210326
  Transmission Date: 20210420
  Serious: No
  Sender: FDA-Public Use
  Company Number: US-CADILA HEALTHCARE LIMITED-US-ZYDUS-055535

PATIENT
  Sex: Male

DRUGS (3)
  1. ATENOLOL TABLET [Suspect]
     Active Substance: ATENOLOL
     Indication: PERIPHERAL VASCULAR DISORDER
  2. METOPROLOL TABLET EXTENDED RELEASE [Suspect]
     Active Substance: METOPROLOL
     Indication: PRODUCT USED FOR UNKNOWN INDICATION
     Route: 065
  3. ATENOLOL TABLET [Suspect]
     Active Substance: ATENOLOL
     Indication: CARDIAC DISORDER

REACTIONS (2)
  - Proctalgia [Unknown]
  - Product use in unapproved indication [Unknown]
